FAERS Safety Report 8495197-0 (Version None)
Quarter: 2012Q2

REPORT INFORMATION
  Report Type: 
  Country: None (occurrence: None)
  Receive Date: 20120405
  Receipt Date: 20100415
  Transmission Date: 20120825
  Serious: Yes (Other)
  Sender: FDA-Public Use
  Company Number: PHHY2010US17501

PATIENT
  Age: 70 Year
  Sex: Female

DRUGS (5)
  1. ZANTAC [Concomitant]
  2. RECLAST [Suspect]
     Indication: OSTEOPOROSIS
     Dosage: 1 X YEARLY, INFUSION
     Dates: start: 20100315
  3. DIOVAN [Concomitant]
  4. METOPROLOL TARTRATE [Concomitant]
  5. CADUET [Concomitant]

REACTIONS (3)
  - MYALGIA [None]
  - PAIN [None]
  - ARTHRALGIA [None]
